FAERS Safety Report 8161496-5 (Version None)
Quarter: 2012Q1

REPORT INFORMATION
  Report Type: 
  Country: None (occurrence: None)
  Receive Date: 20120224
  Receipt Date: 20120221
  Transmission Date: 20120608
  Serious: Yes (Death)
  Sender: FDA-Public Use
  Company Number: US-MEDIMMUNE-MEDI-0014665

PATIENT
  Sex: Female
  Weight: 8.513 kg

DRUGS (2)
  1. SYNAGIS [Suspect]
     Dates: start: 20111130, end: 20111228
  2. ASPIRIN [Concomitant]

REACTIONS (1)
  - DEATH [None]
